FAERS Safety Report 11584134 (Version 1)
Quarter: 2015Q4

REPORT INFORMATION
  Report Type: Spontaneous
  Country: US (occurrence: US)
  Receive Date: 20151001
  Receipt Date: 20151001
  Transmission Date: 20160304
  Serious: Yes (Other)
  Sender: FDA-Public Use
  Company Number: US-TEVA-596757ACC

PATIENT
  Age: 23 Year
  Sex: Female
  Weight: 86.26 kg

DRUGS (4)
  1. FIORICET [Concomitant]
     Active Substance: ACETAMINOPHEN\BUTALBITAL\CAFFEINE
  2. TOPIRAMATE. [Concomitant]
     Active Substance: TOPIRAMATE
  3. SUMATRIPTAN SUCCINATE. [Concomitant]
     Active Substance: SUMATRIPTAN SUCCINATE
  4. PARAGARD T 380A [Suspect]
     Active Substance: COPPER
     Indication: CONTRACEPTION
     Route: 015
     Dates: start: 20150529, end: 20150909

REACTIONS (4)
  - Adnexa uteri mass [Unknown]
  - Polyp [Unknown]
  - Uterine leiomyoma [Unknown]
  - Pain [Unknown]

NARRATIVE: CASE EVENT DATE: 20150531
